FAERS Safety Report 16142344 (Version 2)
Quarter: 2019Q2

REPORT INFORMATION
  Report Type: Spontaneous
  Country: CA (occurrence: CA)
  Receive Date: 20190401
  Receipt Date: 20190424
  Transmission Date: 20190711
  Serious: Yes (Hospitalization, Other)
  Sender: FDA-Public Use
  Company Number: CA-PFIZER INC-2019130679

PATIENT
  Age: 32 Year
  Sex: Female

DRUGS (4)
  1. DEPO-PROVERA [Suspect]
     Active Substance: MEDROXYPROGESTERONE ACETATE
     Dosage: UNK
     Dates: end: 2007
  2. DEPO-PROVERA [Suspect]
     Active Substance: MEDROXYPROGESTERONE ACETATE
     Indication: CONTRACEPTION
     Dosage: 150 MG, EVERY 3 MONTHS
     Route: 030
     Dates: start: 20011106
  3. DEPO-PROVERA [Suspect]
     Active Substance: MEDROXYPROGESTERONE ACETATE
     Dosage: 200 MG, EVERY 3 MONTHS
     Route: 030
     Dates: start: 20020918, end: 2003
  4. DEPO-PROVERA [Suspect]
     Active Substance: MEDROXYPROGESTERONE ACETATE
     Dosage: 1 ML, UNK
     Dates: start: 20050307, end: 20050623

REACTIONS (16)
  - Amenorrhoea [Unknown]
  - Fractured sacrum [Unknown]
  - Pelvic fracture [Unknown]
  - Ilium fracture [Unknown]
  - Scoliosis [Unknown]
  - Fluid retention [Unknown]
  - Foot fracture [Unknown]
  - Spinal compression fracture [Unknown]
  - Vaginal haemorrhage [Unknown]
  - Osteoporosis [Unknown]
  - Osteopenia [Unknown]
  - Sacroiliac fracture [Unknown]
  - Dental caries [Unknown]
  - Wrist fracture [Unknown]
  - Osteoporotic fracture [Unknown]
  - Tooth loss [Unknown]

NARRATIVE: CASE EVENT DATE: 20020707
